FAERS Safety Report 8932080 (Version 1)
Quarter: 2012Q4

REPORT INFORMATION
  Report Type: 
  Country: JP (occurrence: JP)
  Receive Date: 20121128
  Receipt Date: 20121128
  Transmission Date: 20130627
  Serious: Yes (Other)
  Sender: FDA-Public Use
  Company Number: JP-PFIZER INC-2012296355

PATIENT
  Age: 89 Year
  Sex: Female

DRUGS (5)
  1. AMIODARONE HCL [Suspect]
     Indication: ATRIAL TACHYCARDIA
     Dosage: 50 mg, UNK
     Route: 048
  2. DILTIAZEM HCL [Suspect]
     Indication: ATRIAL FIBRILLATION
     Dosage: 200 mg, UNK
     Route: 065
  3. DILTIAZEM HCL [Suspect]
     Indication: ATRIAL TACHYCARDIA
  4. VERAPAMIL [Suspect]
     Indication: ATRIAL FIBRILLATION
     Dosage: 240 mg, UNK
     Route: 065
  5. VERAPAMIL [Suspect]
     Indication: ATRIAL TACHYCARDIA

REACTIONS (2)
  - Device pacing issue [Unknown]
  - Bradycardia [None]
